FAERS Safety Report 23775397 (Version 1)
Quarter: 2024Q2

REPORT INFORMATION
  Report Type: Report from Study
  Country: GB (occurrence: GB)
  Receive Date: 20240423
  Receipt Date: 20240423
  Transmission Date: 20240716
  Serious: Yes (Other)
  Sender: FDA-Public Use
  Company Number: GB-SERVIER-S24004496

PATIENT
  Age: 73 Year
  Sex: Female
  Weight: 87 kg

DRUGS (3)
  1. LONSURF [Suspect]
     Active Substance: TIPIRACIL HYDROCHLORIDE\TRIFLURIDINE
     Indication: Colorectal cancer metastatic
     Dosage: 70 MG, BID, 1 CYCLE, ON D1-5, D8-12 OF EACH 28-DAY CYCLE
     Route: 048
     Dates: start: 20220421, end: 20220519
  2. LONSURF [Suspect]
     Active Substance: TIPIRACIL HYDROCHLORIDE\TRIFLURIDINE
     Dosage: 55 MG, BID, 4 CYCLES, ON D1-5, D8-12 OF EACH 28-DAY CYCLE
     Route: 048
     Dates: start: 20220526, end: 20221005
  3. LONSURF [Suspect]
     Active Substance: TIPIRACIL HYDROCHLORIDE\TRIFLURIDINE
     Dosage: 40 MG, BID, 2 CYCLES, ON D1-5, D8-12 OF EACH 28-DAY CYCLE
     Route: 048
     Dates: start: 20221006, end: 20221201

REACTIONS (4)
  - Diarrhoea [Recovered/Resolved]
  - Fatigue [Recovered/Resolved]
  - Abdominal pain upper [Recovered/Resolved]
  - Dyspepsia [Recovered/Resolved]

NARRATIVE: CASE EVENT DATE: 20220506
